FAERS Safety Report 9103145 (Version 1)
Quarter: 2013Q1

REPORT INFORMATION
  Report Type: Spontaneous
  Country: US (occurrence: US)
  Receive Date: 20130219
  Receipt Date: 20130219
  Transmission Date: 20140127
  Serious: Yes (Death)
  Sender: FDA-Public Use
  Company Number: US-PFIZER INC-2013060523

PATIENT
  Sex: Female

DRUGS (1)
  1. ROBITUSSIN PEAK COLD MULTI-SYMPTOM COLD [Suspect]
     Dosage: UNK

REACTIONS (1)
  - Death [Fatal]
